FAERS Safety Report 5124361-3 (Version None)
Quarter: 2006Q3

REPORT INFORMATION
  Report Type: 
  Country: None (occurrence: None)
  Receive Date: 20060816
  Receipt Date: 20060630
  Transmission Date: 20061208
  Serious: No
  Sender: FDA-Public Use
  Company Number: US200607000406

PATIENT
  Sex: Male

DRUGS (1)
  1. CIALIS [Suspect]
     Dosage: 20 MG
     Dates: start: 20030101

REACTIONS (1)
  - INFLUENZA LIKE ILLNESS [None]
